FAERS Safety Report 8561241-5 (Version None)
Quarter: 2012Q3

REPORT INFORMATION
  Report Type: 
  Country: None (occurrence: None)
  Receive Date: 20120802
  Receipt Date: 20120524
  Transmission Date: 20120928
  Serious: Yes (Death, Hospitalization)
  Sender: FDA-Public Use
  Company Number: ES-EISAI INC-E2090-02028-SPO-ES

PATIENT
  Age: 20 Year
  Sex: Male

DRUGS (4)
  1. DEPAKENE [Concomitant]
     Route: 048
  2. KEPPRA [Concomitant]
     Dosage: 500 IN AM, 1000 MG IN PM
  3. ZONEGRAN [Suspect]
     Dosage: 300 MG DAILY
     Route: 048
     Dates: start: 20111024, end: 20120214
  4. RIVOTRIL [Concomitant]
     Dosage: 3.62 MG DAILY (5 DROPS IN AM, 5 DROPS IN MID-DAY, 19 DROPS IN PM)

REACTIONS (6)
  - PANCYTOPENIA [None]
  - RESPIRATORY FAILURE [None]
  - SEPTIC SHOCK [None]
  - RESPIRATORY TRACT INFECTION [None]
  - PNEUMONIA [None]
  - APLASTIC ANAEMIA [None]
